FAERS Safety Report 5804416-8 (Version None)
Quarter: 2008Q3

REPORT INFORMATION
  Report Type: 
  Country: None (occurrence: None)
  Receive Date: 20080707
  Receipt Date: 20080707
  Transmission Date: 20090109
  Serious: Yes (Hospitalization)
  Sender: FDA-Public Use
  Company Number: None

PATIENT
  Age: 59 Year
  Sex: Male
  Weight: 56.6996 kg

DRUGS (1)
  1. BEVACIZUMAB 500MG VIAL [Suspect]
     Indication: NON-SMALL CELL LUNG CANCER STAGE IV
     Dosage: 900MG EVERY 3 WEEKS IV
     Route: 042
     Dates: start: 20080101, end: 20080522

REACTIONS (3)
  - DISEASE PROGRESSION [None]
  - LUNG DISORDER [None]
  - PNEUMOTHORAX [None]
